FAERS Safety Report 11525903 (Version 1)
Quarter: 2015Q3

REPORT INFORMATION
  Report Type: Spontaneous
  Country: US (occurrence: US)
  Receive Date: 20150918
  Receipt Date: 20150918
  Transmission Date: 20151125
  Serious: No
  Sender: FDA-Public Use
  Company Number: US-GLAXOSMITHKLINE-US2015130947

PATIENT
  Sex: Male

DRUGS (2)
  1. ADVAIR DISKUS [Suspect]
     Active Substance: FLUTICASONE PROPIONATE\SALMETEROL XINAFOATE
     Indication: WHEEZING
     Dosage: 2 PUFF(S), BID
     Route: 055
     Dates: start: 20150827
  2. COMBIVENT [Concomitant]
     Active Substance: ALBUTEROL SULFATE\IPRATROPIUM BROMIDE

REACTIONS (5)
  - Prescribed overdose [Unknown]
  - Oral pain [Not Recovered/Not Resolved]
  - Pharyngeal disorder [Recovering/Resolving]
  - Oral discomfort [Not Recovered/Not Resolved]
  - Oral mucosal eruption [Recovering/Resolving]
